FAERS Safety Report 7749629-3 (Version None)
Quarter: 2011Q3

REPORT INFORMATION
  Report Type: 
  Country: None (occurrence: None)
  Receive Date: 20110825
  Receipt Date: 20110627
  Transmission Date: 20111222
  Serious: No
  Sender: FDA-Public Use
  Company Number: 330110

PATIENT
  Age: 67 Year
  Sex: Female
  Weight: 81.6 kg

DRUGS (3)
  1. METFORMIN HCL [Concomitant]
  2. VICTOZA [Suspect]
     Indication: WEIGHT DECREASED
     Dosage: 1.2 MG, QD, SUBCUTANEOUS
     Route: 058
     Dates: start: 20110608, end: 20110614
  3. VICTOZA [Suspect]
     Indication: TYPE 2 DIABETES MELLITUS
     Dosage: 1.2 MG, QD, SUBCUTANEOUS
     Route: 058
     Dates: start: 20110608, end: 20110614

REACTIONS (6)
  - WEIGHT DECREASED [None]
  - GASTRITIS [None]
  - ABDOMINAL DISTENSION [None]
  - BLOOD GLUCOSE INCREASED [None]
  - NAUSEA [None]
  - DYSPEPSIA [None]
